FAERS Safety Report 9292215 (Version 1)
Quarter: 2013Q1

REPORT INFORMATION
  Report Type: Spontaneous
  Country: US (occurrence: None)
  Receive Date: 20121130
  Receipt Date: 20121130
  Transmission Date: 20140127
  Serious: Yes (Hospitalization)
  Sender: FDA-Public Use
  Company Number: UTC-020828

PATIENT
  Age: 66 Year
  Sex: Male
  Weight: 69.7 kg

DRUGS (15)
  1. TYVASO (6 MICROGRAM, AEROSOL FOR INHALATION)(TREPROSTINIL SODIUM) [Suspect]
     Indication: PULMONARY ARTERIAL HYPERTENSION
     Dosage: (18 MCG, 4 UB 1 D)
     Route: 055
  2. UT-15C SR(SUSTAINED-RELEASE TABLET)(TREPROSTINIL DIETHANOLAMINE) [Suspect]
     Indication: PULMONARY ARTERIAL HYPERTENSION
     Dosage: (3.5 MG, 2 IN D)
     Route: 048
     Dates: start: 20120308
  3. BUMETANIDE [Suspect]
     Indication: POLYURIA
     Dosage: (0.5 MG , 1 IN 1 D)
     Route: 048
     Dates: start: 201111, end: 20120708
  4. BUMETANIDE [Suspect]
     Indication: PULMONARY ARTERIAL HYPERTENSION
     Dosage: (0.5 MG , 1 IN 1 D)
     Route: 048
     Dates: start: 201111, end: 20120708
  5. LASIX [Suspect]
     Indication: POLYURIA
     Dosage: (AS REQUIRED)
     Route: 048
     Dates: start: 20100727, end: 20120708
  6. TRACLEER (BOSENTAN)(TABLET) [Concomitant]
  7. FLOMAX(TAMSULOSIN HYDROCHLORIDE)(CAPSULE) [Concomitant]
  8. LISINOPRIL (TABLET) [Concomitant]
  9. METHOTREXATE (TABLET) [Concomitant]
  10. METOCLOPRAMIDE (TABLET) [Concomitant]
  11. FOLIC ACID (TABLET) [Concomitant]
  12. FERROUS SULFATE(TABLET) [Concomitant]
  13. CARAFATE(SUCRALFATE)(UNKNOWN) [Concomitant]
  14. IMODIUM(LOPERAMIDE HYDROCHLORIDE)(UNKNOWN) [Concomitant]
  15. OMEPRAZOLE [Concomitant]

REACTIONS (14)
  - Ascites [None]
  - Renal failure acute [None]
  - Diarrhoea [None]
  - Fatigue [None]
  - Dyspnoea [None]
  - Abdominal pain [None]
  - Gastrooesophageal reflux disease [None]
  - Cachexia [None]
  - Confusional state [None]
  - Hepatic cirrhosis [None]
  - Malnutrition [None]
  - Hyponatraemia [None]
  - Scleroderma [None]
  - Condition aggravated [None]
